FAERS Safety Report 24872738 (Version 1)
Quarter: 2025Q1

REPORT INFORMATION
  Report Type: Spontaneous
  Country: US (occurrence: US)
  Receive Date: 20250122
  Receipt Date: 20250122
  Transmission Date: 20250409
  Serious: No
  Sender: NANJING KING-FRIEND BIOCHEMICAL PHARMACEUTICAL
  Company Number: US-NKFPHARMA-2024MPSPO00212

PATIENT
  Age: 69 Year
  Sex: Male
  Weight: 160 kg

DRUGS (2)
  1. ENOXAPARIN SODIUM [Suspect]
     Active Substance: ENOXAPARIN SODIUM
     Indication: Thrombosis
     Route: 058
     Dates: start: 202406, end: 202407
  2. ENOXAPARIN SODIUM [Suspect]
     Active Substance: ENOXAPARIN SODIUM
     Route: 058
     Dates: start: 2024

REACTIONS (3)
  - Product dose omission issue [Unknown]
  - Injection site pain [Unknown]
  - Needle issue [Unknown]
